FAERS Safety Report 6443262-1 (Version None)
Quarter: 2009Q4

REPORT INFORMATION
  Report Type: 
  Country: None (occurrence: None)
  Receive Date: 20091112
  Receipt Date: 20091029
  Transmission Date: 20100525
  Serious: Yes (Hospitalization)
  Sender: FDA-Public Use
  Company Number: CIP09003001

PATIENT
  Age: 80 Year
  Sex: Female

DRUGS (3)
  1. ACTONEL [Suspect]
     Indication: OSTEOPOROSIS
     Dosage: 75 MG 1 DOSE ONLY, ORAL
     Route: 048
     Dates: start: 20090901, end: 20090901
  2. CALCIUM [Concomitant]
  3. ANTIHYPERTENSIVES [Concomitant]

REACTIONS (5)
  - BACK PAIN [None]
  - BREATH SOUNDS ABNORMAL [None]
  - DYSPNOEA [None]
  - MUSCULOSKELETAL PAIN [None]
  - TACHYCARDIA [None]
